FAERS Safety Report 4659035-6 (Version None)
Quarter: 2005Q2

REPORT INFORMATION
  Report Type: 
  Country: None (occurrence: None)
  Receive Date: 20050509
  Receipt Date: 20050427
  Transmission Date: 20051028
  Serious: Yes (Death)
  Sender: FDA-Public Use
  Company Number: D0046164B

PATIENT
  Sex: 0

DRUGS (1)
  1. ATMADISC MULTI DOSE POWDER INHALER (FLUTICASONE+SALMETEROL) [Suspect]
     Dosage: 300 MCG /TWICE PER DAY/ TRANSPLACEN
     Route: 064

REACTIONS (4)
  - ABORTION SPONTANEOUS [None]
  - DRUG EXPOSURE DURING PREGNANCY [None]
  - INTRA-UTERINE DEATH [None]
  - TRISOMY 21 [None]
